FAERS Safety Report 10445786 (Version 2)
Quarter: 2018Q4

REPORT INFORMATION
  Report Type: Spontaneous
  Country: US (occurrence: US)
  Receive Date: 20140910
  Receipt Date: 20181112
  Transmission Date: 20190204
  Serious: Yes (Death, Hospitalization)
  Sender: FDA-Public Use
  Company Number: US-MYLANLABS-2014M1004175

PATIENT
  Age: 36 Year
  Sex: Female

DRUGS (1)
  1. DILTIAZEM. [Suspect]
     Active Substance: DILTIAZEM
     Indication: CHEST PAIN
     Dosage: 20 DILTIAZEM SR 120MG
     Route: 048

REACTIONS (6)
  - Accidental overdose [Fatal]
  - Medication error [Fatal]
  - Intestinal ischaemia [Unknown]
  - Cardiac arrest [Fatal]
  - Renal failure [Fatal]
  - Toxicity to various agents [Fatal]

NARRATIVE: CASE EVENT DATE: 2013
